FAERS Safety Report 24795178 (Version 1)
Quarter: 2024Q4

REPORT INFORMATION
  Report Type: Spontaneous
  Country: CN (occurrence: CN)
  Receive Date: 20241231
  Receipt Date: 20241231
  Transmission Date: 20250115
  Serious: Yes (Hospitalization)
  Sender: NOVARTIS
  Company Number: CN-002147023-NVSC2024CN245441

PATIENT
  Age: 60 Year
  Sex: Female

DRUGS (1)
  1. SACUBITRIL\VALSARTAN [Suspect]
     Active Substance: SACUBITRIL\VALSARTAN
     Indication: Hypertension
     Dosage: 100 MG, QD
     Route: 048
     Dates: start: 20200211, end: 20241211

REACTIONS (12)
  - Blood creatinine increased [Unknown]
  - Chest discomfort [Unknown]
  - Cardiovascular disorder [Unknown]
  - Albumin globulin ratio decreased [Unknown]
  - Blood bilirubin increased [Unknown]
  - Alanine aminotransferase increased [Unknown]
  - Aspartate aminotransferase increased [Unknown]
  - Gamma-glutamyltransferase increased [Unknown]
  - Glutamate dehydrogenase increased [Unknown]
  - Cystatin C increased [Unknown]
  - Glomerular filtration rate decreased [Unknown]
  - Protein urine absent [Unknown]

NARRATIVE: CASE EVENT DATE: 20241211
